FAERS Safety Report 7142388-7 (Version None)
Quarter: 2010Q4

REPORT INFORMATION
  Report Type: 
  Country: None (occurrence: None)
  Receive Date: 20101207
  Receipt Date: 20101129
  Transmission Date: 20110411
  Serious: No
  Sender: FDA-Public Use
  Company Number: US-PFIZER INC-2010160521

PATIENT
  Sex: Female

DRUGS (1)
  1. EFFEXOR [Suspect]
     Indication: ANXIETY
     Dosage: UNK

REACTIONS (4)
  - DECREASED APPETITE [None]
  - DRUG INEFFECTIVE [None]
  - DRUG INTOLERANCE [None]
  - SLEEP DISORDER [None]
